FAERS Safety Report 4366134-5 (Version None)
Quarter: 2004Q2

REPORT INFORMATION
  Report Type: 
  Country: None (occurrence: None)
  Receive Date: 20040526
  Receipt Date: 20040526
  Transmission Date: 20050107
  Serious: No
  Sender: FDA-Public Use
  Company Number: None

PATIENT
  Sex: Male
  Weight: 90.7194 kg

DRUGS (8)
  1. GATIFLOXACIN 400 MG BRISTOL-MYERS SQUIBB [Suspect]
     Indication: SERRATIA INFECTION
     Dosage: 400 MG DAILY ORAL
     Route: 048
     Dates: start: 20040513, end: 20040520
  2. WARFARIN SODIUM [Concomitant]
  3. PLAVIX [Concomitant]
  4. ASPIRIN [Concomitant]
  5. METFORMIN HCL [Concomitant]
  6. PRAVASTATIN [Concomitant]
  7. METOPROLOL TARTRATE [Concomitant]
  8. LISINOPRIL [Concomitant]

REACTIONS (1)
  - HYPERGLYCAEMIA [None]
